FAERS Safety Report 6378736-5 (Version None)
Quarter: 2009Q3

REPORT INFORMATION
  Report Type: 
  Country: None (occurrence: None)
  Receive Date: 20090928
  Receipt Date: 20090914
  Transmission Date: 20100115
  Serious: Yes (Other)
  Sender: FDA-Public Use
  Company Number: US-ROCHE-656791

PATIENT
  Sex: Male

DRUGS (2)
  1. PEGASYS [Suspect]
     Indication: HEPATITIS C
     Route: 065
     Dates: start: 20040101, end: 20060101
  2. RIBAVIRIN [Suspect]
     Indication: HEPATITIS C
     Dosage: FORMULATION: PILLS
     Route: 065
     Dates: start: 20040101, end: 20060101

REACTIONS (2)
  - HEPATIC NEOPLASM MALIGNANT [None]
  - HEPATITIS C POSITIVE [None]
